FAERS Safety Report 14580193 (Version 1)
Quarter: 2018Q1

REPORT INFORMATION
  Report Type: Spontaneous
  Country: IT (occurrence: IT)
  Receive Date: 20180228
  Receipt Date: 20180228
  Transmission Date: 20180509
  Serious: Yes (Other)
  Sender: FDA-Public Use
  Company Number: IT-ACCORD-063806

PATIENT
  Age: 14 Year
  Sex: Male

DRUGS (26)
  1. MYCOSTATIN [Concomitant]
     Active Substance: NYSTATIN
     Dosage: 5 ML DAILY
     Route: 048
     Dates: start: 20170520, end: 20170522
  2. FUROSEMIDE. [Concomitant]
     Active Substance: FUROSEMIDE
     Dosage: 20 MG DAILY
     Route: 042
     Dates: start: 20170523, end: 20170626
  3. URBASON [Concomitant]
     Active Substance: METHYLPREDNISOLONE
     Dosage: 20 MG DAILY
     Route: 042
     Dates: start: 20170523, end: 20170526
  4. MERREM [Concomitant]
     Active Substance: MEROPENEM
     Dosage: 1 G DAILY
     Route: 042
     Dates: start: 20170520, end: 20170617
  5. ZOVIRAX [Concomitant]
     Active Substance: ACYCLOVIR
     Dates: start: 20170520, end: 20170522
  6. THYMOGLOBULINE [Suspect]
     Active Substance: LAPINE T-LYMPHOCYTE IMMUNE GLOBULIN
     Indication: BONE MARROW TRANSPLANT
     Dosage: 150 MG DAILY,
     Route: 042
     Dates: start: 20170523
  7. TRIASPORIN [Concomitant]
     Active Substance: ITRACONAZOLE
     Dosage: 10 ML DAILY
     Route: 048
     Dates: start: 20170520, end: 20170522
  8. FLUDARABINE/FLUDARABINE PHOSPHATE [Suspect]
     Active Substance: FLUDARABINE PHOSPHATE
     Indication: BONE MARROW TRANSPLANT
     Route: 042
     Dates: start: 20170523
  9. ACICLOVIR [Concomitant]
     Active Substance: ACYCLOVIR
     Dosage: 500 MG DAILY
     Route: 042
     Dates: start: 20170527, end: 20170626
  10. CICLOSPORIN [Concomitant]
     Active Substance: CYCLOSPORINE
     Dosage: 75 MG DAILY
     Dates: start: 20170527, end: 20170620
  11. PALONOSETRON. [Concomitant]
     Active Substance: PALONOSETRON HYDROCHLORIDE
     Dosage: 1 DF DAILY
     Dates: start: 20170523
  12. ANTRA [Concomitant]
     Active Substance: OMEPRAZOLE
     Dosage: 40 MG DAILY
     Route: 042
     Dates: start: 20170520, end: 20170529
  13. URSODEOXYCHOLATE SODIUM/URSODEOXYCHOLIC ACID [Concomitant]
     Dates: start: 20170523, end: 20170526
  14. BACTRIM [Concomitant]
     Active Substance: SULFAMETHOXAZOLE\TRIMETHOPRIM
     Dates: start: 20170523
  15. DIAMINOCILLINA [Concomitant]
     Active Substance: PENICILLIN G BENZATHINE
     Dosage: 1200000 DF DAILY
     Dates: start: 20170522
  16. HEPARIN [Concomitant]
     Active Substance: HEPARIN SODIUM
     Dates: start: 20170523, end: 20170619
  17. BACTRIM [Concomitant]
     Active Substance: SULFAMETHOXAZOLE\TRIMETHOPRIM
     Dosage: 1 DF DAILY
     Route: 048
     Dates: start: 20170523
  18. DIFLUCAN [Concomitant]
     Active Substance: FLUCONAZOLE
     Dosage: 500 MG DAILY
     Route: 042
     Dates: start: 20170520, end: 20170522
  19. EMEND [Concomitant]
     Active Substance: APREPITANT
     Dates: start: 20170523, end: 20170525
  20. TACHIPIRINA [Concomitant]
     Active Substance: ACETAMINOPHEN
  21. METHOTREXATE. [Suspect]
     Active Substance: METHOTREXATE
     Indication: PRODUCT USED FOR UNKNOWN INDICATION
     Route: 042
     Dates: start: 20170530, end: 20170604
  22. ENDOXAN BAXTER [Suspect]
     Active Substance: CYCLOPHOSPHAMIDE
     Indication: BONE MARROW TRANSPLANT
     Dosage: 450 MG DAILY,
     Route: 042
     Dates: start: 20170523
  23. CLINDAMYCIN. [Concomitant]
     Active Substance: CLINDAMYCIN
     Dosage: 300 MG DAILY
     Route: 042
     Dates: start: 20170520, end: 20170617
  24. FLUCONAZOLE. [Concomitant]
     Active Substance: FLUCONAZOLE
     Dates: start: 20170523, end: 20170531
  25. TRIMETON [Concomitant]
     Active Substance: CHLORPHENIRAMINE MALEATE
     Dosage: 10 MG DAILY
     Route: 042
     Dates: start: 20170523, end: 20170526
  26. UROMITEXAN [Concomitant]
     Active Substance: MESNA
     Dosage: 150 MG DAILY
     Route: 042
     Dates: start: 20170523, end: 20170526

REACTIONS (7)
  - Diarrhoea [Recovered/Resolved]
  - Haematochezia [Recovered/Resolved]
  - Erythema [Recovering/Resolving]
  - Petechiae [Recovered/Resolved]
  - Pruritus [Recovered/Resolved]
  - Mouth haemorrhage [Recovering/Resolving]
  - Off label use [Unknown]

NARRATIVE: CASE EVENT DATE: 20170524
